FAERS Safety Report 7008730-2 (Version None)
Quarter: 2010Q3

REPORT INFORMATION
  Report Type: 
  Country: None (occurrence: None)
  Receive Date: 20100921
  Receipt Date: 20100723
  Transmission Date: 20110219
  Serious: Yes (Death, Life-Threatening, Hospitalization)
  Sender: FDA-Public Use
  Company Number: 2010SP040494

PATIENT
  Age: 64 Year
  Sex: Male
  Weight: 67 kg

DRUGS (5)
  1. TEMOZOLOMIDE [Suspect]
     Indication: GLIOBLASTOMA
     Dosage: 85 MG; PO
     Route: 048
  2. IRINOTECAN HCL [Suspect]
     Indication: GLIOBLASTOMA
     Dosage: 170 MG;QD;IV
     Route: 042
     Dates: start: 20100706
  3. DEXAMETHASONE (CON.) [Concomitant]
  4. LEVETIRACETAM (CON.) [Concomitant]
  5. DEXAMETHASONE (CON.) [Concomitant]

REACTIONS (4)
  - ACUTE RESPIRATORY DISTRESS SYNDROME [None]
  - LEUKOPENIA [None]
  - LYMPHOPENIA [None]
  - PNEUMONIA [None]
